FAERS Safety Report 25488171 (Version 1)
Quarter: 2025Q2

REPORT INFORMATION
  Report Type: Spontaneous
  Country: CA (occurrence: CA)
  Receive Date: 20250627
  Receipt Date: 20250627
  Transmission Date: 20250716
  Serious: Yes (Other)
  Sender: BRACCO
  Company Number: CA-BRACCO-2025CA04183

PATIENT
  Age: 67 Year
  Sex: Male

DRUGS (1)
  1. ISOVUE 370 [Suspect]
     Active Substance: IOPAMIDOL
     Indication: Computerised tomogram abdomen
     Route: 042

REACTIONS (2)
  - Oropharyngeal discomfort [Recovering/Resolving]
  - Dizziness [Recovering/Resolving]
